FAERS Safety Report 18287599 (Version 1)
Quarter: 2020Q3

REPORT INFORMATION
  Report Type: Report from Study
  Country: MX (occurrence: MX)
  Receive Date: 20200921
  Receipt Date: 20200921
  Transmission Date: 20201104
  Serious: Yes (Other)
  Sender: FDA-Public Use
  Company Number: MX-SUN PHARMACEUTICAL INDUSTRIES LTD-2020R1-261591

PATIENT
  Sex: Male

DRUGS (26)
  1. LOSARTAN. [Interacting]
     Active Substance: LOSARTAN
     Indication: URAEMIC ENCEPHALOPATHY
  2. CAPTOPRIL. [Interacting]
     Active Substance: CAPTOPRIL
     Indication: CARDIAC FAILURE CONGESTIVE
  3. FERROUS SULFATE. [Interacting]
     Active Substance: FERROUS SULFATE
     Indication: CARDIOMYOPATHY
  4. LOSARTAN. [Interacting]
     Active Substance: LOSARTAN
     Indication: CARDIAC FAILURE CONGESTIVE
  5. DIPYRONE [Interacting]
     Active Substance: DIPYRONE
     Indication: CARDIAC FAILURE CONGESTIVE
  6. DIPYRONE [Interacting]
     Active Substance: DIPYRONE
     Indication: CARDIOMYOPATHY
  7. DIPYRONE [Interacting]
     Active Substance: DIPYRONE
     Indication: PULMONARY OEDEMA
  8. DIGOXIN. [Interacting]
     Active Substance: DIGOXIN
     Indication: CARDIAC FAILURE CONGESTIVE
  9. DIGOXIN. [Interacting]
     Active Substance: DIGOXIN
     Indication: CARDIOMYOPATHY
  10. LOSARTAN. [Interacting]
     Active Substance: LOSARTAN
     Indication: CARDIOMYOPATHY
  11. CAPTOPRIL. [Interacting]
     Active Substance: CAPTOPRIL
     Indication: URAEMIC ENCEPHALOPATHY
  12. FERROUS SULFATE. [Interacting]
     Active Substance: FERROUS SULFATE
     Indication: RENAL FAILURE
     Dosage: UNK
     Route: 065
  13. LOSARTAN. [Interacting]
     Active Substance: LOSARTAN
     Indication: RENAL FAILURE
     Dosage: UNK
     Route: 065
  14. DIPYRONE [Interacting]
     Active Substance: DIPYRONE
     Indication: RENAL FAILURE
     Dosage: UNK
     Route: 065
  15. DIGOXIN. [Interacting]
     Active Substance: DIGOXIN
     Indication: PULMONARY OEDEMA
  16. DIGOXIN. [Suspect]
     Active Substance: DIGOXIN
     Indication: RENAL FAILURE
     Dosage: UNK
     Route: 065
  17. CAPTOPRIL. [Interacting]
     Active Substance: CAPTOPRIL
     Indication: RENAL FAILURE
     Dosage: UNK
     Route: 065
  18. CAPTOPRIL. [Interacting]
     Active Substance: CAPTOPRIL
     Indication: CARDIOMYOPATHY
  19. FERROUS SULFATE. [Interacting]
     Active Substance: FERROUS SULFATE
     Indication: CARDIAC FAILURE CONGESTIVE
  20. FERROUS SULFATE. [Interacting]
     Active Substance: FERROUS SULFATE
     Indication: PULMONARY OEDEMA
  21. FERROUS SULFATE. [Interacting]
     Active Substance: FERROUS SULFATE
     Indication: URAEMIC ENCEPHALOPATHY
  22. CALCIUM CARBONATE. [Interacting]
     Active Substance: CALCIUM CARBONATE
     Indication: RENAL FAILURE
     Dosage: UNK
     Route: 065
  23. CAPTOPRIL. [Interacting]
     Active Substance: CAPTOPRIL
     Indication: PULMONARY OEDEMA
  24. DIGOXIN. [Interacting]
     Active Substance: DIGOXIN
     Indication: URAEMIC ENCEPHALOPATHY
  25. LOSARTAN. [Interacting]
     Active Substance: LOSARTAN
     Indication: PULMONARY OEDEMA
  26. DIPYRONE [Interacting]
     Active Substance: DIPYRONE
     Indication: URAEMIC ENCEPHALOPATHY

REACTIONS (1)
  - Drug interaction [Unknown]
